FAERS Safety Report 5249902-7 (Version None)
Quarter: 2007Q1

REPORT INFORMATION
  Report Type: 
  Country: None (occurrence: None)
  Receive Date: 20070228
  Receipt Date: 20060829
  Transmission Date: 20070707
  Serious: No
  Sender: FDA-Public Use
  Company Number: US-GLAXOSMITHKLINE-A0547370A

PATIENT
  Sex: Female

DRUGS (3)
  1. LAMICTAL [Suspect]
     Dates: end: 20050224
  2. LAMICTAL [Suspect]
     Indication: BIPOLAR DISORDER
     Dosage: 25MG PER DAY
     Route: 048
     Dates: start: 20060801, end: 20060826
  3. NO CONCURRENT MEDICATION [Concomitant]

REACTIONS (3)
  - CONSTIPATION [None]
  - CUTIS LAXA [None]
  - THERAPEUTIC RESPONSE UNEXPECTED [None]
